FAERS Safety Report 4598064-8 (Version None)
Quarter: 2005Q1

REPORT INFORMATION
  Report Type: 
  Country: None (occurrence: None)
  Receive Date: 20050304
  Receipt Date: 20041201
  Transmission Date: 20050727
  Serious: Yes (Hospitalization)
  Sender: FDA-Public Use
  Company Number: US-KINGPHARMUSA00001-K200401840

PATIENT
  Age: 60 Year
  Sex: Female

DRUGS (12)
  1. ALTACE [Suspect]
     Dosage: 10 MG, QD
     Route: 048
     Dates: start: 20020101, end: 20041029
  2. ALTACE [Suspect]
     Dosage: 10 MG, QD
     Route: 048
     Dates: start: 20050111
  3. DILTIAZEM [Suspect]
     Dosage: 300 MG, QD
     Route: 048
     Dates: start: 20020101, end: 20041029
  4. DILTIAZEM [Suspect]
     Dosage: 300 MG, QD
     Route: 048
     Dates: start: 20050111
  5. EUPRESSYL [Suspect]
     Dosage: 120 MG, QD
     Route: 048
     Dates: start: 20020101, end: 20041029
  6. EUPRESSYL [Suspect]
     Dosage: 120 MG, QD
     Route: 048
     Dates: start: 20050111
  7. ZOLOFT [Suspect]
     Dosage: 50 MG, QD
     Route: 048
     Dates: start: 20020101, end: 20041029
  8. ZOLOFT [Suspect]
     Dosage: 50 MG, QD
     Route: 048
     Dates: start: 20050111
  9. LODALES [Suspect]
     Dosage: 30 MG, QD
     Route: 048
     Dates: start: 20020101, end: 20041029
  10. LODALES [Suspect]
     Dosage: 30 MG, QD
     Route: 048
     Dates: start: 20050111
  11. GLUCOR [Suspect]
     Dosage: 150 MG, QD
     Route: 048
     Dates: start: 20040901, end: 20041029
  12. GLUCOR [Suspect]
     Dosage: 150 MG, QD
     Route: 048
     Dates: start: 20050111

REACTIONS (2)
  - CYTOLYTIC HEPATITIS [None]
  - PANCREATITIS ACUTE [None]
